FAERS Safety Report 8976184 (Version 1)
Quarter: 2012Q4

REPORT INFORMATION
  Report Type: 
  Country: US (occurrence: US)
  Receive Date: 20121219
  Receipt Date: 20121219
  Transmission Date: 20130627
  Serious: No
  Sender: FDA-Public Use
  Company Number: US-AMGEN-USASP2012066121

PATIENT
  Sex: Female

DRUGS (4)
  1. PROLIA [Suspect]
     Indication: PRODUCT USED FOR UNKNOWN INDICATION
     Dosage: UNK
     Dates: start: 201203
  2. CALCIUM [Concomitant]
  3. VITAMIN D [Concomitant]
  4. FORTEO [Concomitant]
     Dosage: UNK

REACTIONS (4)
  - Cystitis [Unknown]
  - Abdominal pain lower [Unknown]
  - Abdominal distension [Unknown]
  - Bladder disorder [Unknown]
